FAERS Safety Report 8454909-2 (Version None)
Quarter: 2012Q2

REPORT INFORMATION
  Report Type: 
  Country: None (occurrence: None)
  Receive Date: 20120621
  Receipt Date: 20120611
  Transmission Date: 20120825
  Serious: Yes (Hospitalization)
  Sender: FDA-Public Use
  Company Number: US-BAYER-2012-057528

PATIENT
  Age: 43 Year
  Sex: Female
  Weight: 101.13 kg

DRUGS (11)
  1. ASPIRIN [Concomitant]
     Indication: THROMBOSIS PROPHYLAXIS
     Dosage: 325 MG, UNK
  2. DROSPIRENONE AND ETHINYL ESTRADIOL [Suspect]
     Indication: CONTRACEPTION
     Dosage: UNK
     Dates: start: 20100610, end: 20101117
  3. ZOCOR [Concomitant]
     Dosage: 20 MG, HS
  4. LIPITOR [Concomitant]
  5. ANTIMIGRAINE PREPARATIONS [Concomitant]
  6. ANTIBIOTICS [Concomitant]
  7. FLEXERIL [Concomitant]
     Dosage: 10 MG, PRN
     Route: 048
  8. LOVENOX [Concomitant]
     Indication: THROMBOSIS PROPHYLAXIS
  9. YAZ [Suspect]
     Indication: CONTRACEPTION
     Dosage: UNK
     Dates: start: 20090312, end: 20100513
  10. HYDROCODONE BITARTRATE AND ACETAMINOPHEN [Concomitant]
     Dosage: 5-500 MILLIGRAM
     Route: 048
  11. NSAID'S [Concomitant]

REACTIONS (7)
  - CONFUSIONAL STATE [None]
  - VIITH NERVE PARALYSIS [None]
  - COGNITIVE DISORDER [None]
  - NEUROLOGICAL EXAMINATION ABNORMAL [None]
  - TRANSIENT ISCHAEMIC ATTACK [None]
  - THROMBOSIS [None]
  - HYPOAESTHESIA [None]
